FAERS Safety Report 7934876-8 (Version None)
Quarter: 2011Q4

REPORT INFORMATION
  Report Type: 
  Country: None (occurrence: None)
  Receive Date: 20111122
  Receipt Date: 20111117
  Transmission Date: 20120403
  Serious: Yes (Hospitalization)
  Sender: FDA-Public Use
  Company Number: PHHO2011IL019414

PATIENT
  Sex: Female
  Weight: 24.3 kg

DRUGS (1)
  1. ILARIS [Suspect]
     Indication: JUVENILE ARTHRITIS
     Dosage: 90 MG, QMO
     Route: 058
     Dates: end: 20111103

REACTIONS (2)
  - HISTIOCYTOSIS HAEMATOPHAGIC [None]
  - DISEASE PROGRESSION [None]
